FAERS Safety Report 13842476 (Version 1)
Quarter: 2017Q3

REPORT INFORMATION
  Report Type: Spontaneous
  Country: US (occurrence: US)
  Receive Date: 20170807
  Receipt Date: 20170807
  Transmission Date: 20171127
  Serious: Yes (Hospitalization)
  Sender: FDA-Public Use
  Company Number: None

PATIENT
  Age: 53 Year
  Sex: Male
  Weight: 83.87 kg

DRUGS (15)
  1. METOPROLOL SUCCINATE. [Concomitant]
     Active Substance: METOPROLOL SUCCINATE
  2. AZACITIDINE. [Suspect]
     Active Substance: AZACITIDINE
     Indication: ACUTE MYELOID LEUKAEMIA
     Dosage: ?          OTHER FREQUENCY:DAY 1 TO DAY 5;?
     Route: 058
     Dates: start: 20170713, end: 20170717
  3. FLUCONAZOLE. [Concomitant]
     Active Substance: FLUCONAZOLE
  4. VALPORIC ACID [Suspect]
     Active Substance: VALPROIC ACID
     Indication: ACUTE MYELOID LEUKAEMIA
     Route: 048
     Dates: start: 20170713
  5. ADVAIR DISKUS [Concomitant]
     Active Substance: FLUTICASONE PROPIONATE\SALMETEROL XINAFOATE
  6. FOLIC ACID. [Concomitant]
     Active Substance: FOLIC ACID
  7. MIRTAZAPINE. [Concomitant]
     Active Substance: MIRTAZAPINE
  8. HYDROCORTISONE. [Concomitant]
     Active Substance: HYDROCORTISONE
  9. PANTOPRAZOLE [Concomitant]
     Active Substance: PANTOPRAZOLE
  10. METFORMIN [Concomitant]
     Active Substance: METFORMIN HYDROCHLORIDE
  11. PROCHLORPERAZINE. [Concomitant]
     Active Substance: PROCHLORPERAZINE
  12. ACYCLOVIR. [Concomitant]
     Active Substance: ACYCLOVIR
  13. GABAPENTIN. [Concomitant]
     Active Substance: GABAPENTIN
  14. MEDROL [Concomitant]
     Active Substance: METHYLPREDNISOLONE
  15. MULTIPLE VITAMIN [Concomitant]
     Active Substance: VITAMINS

REACTIONS (3)
  - Septic shock [None]
  - Enterobacter test positive [None]
  - Blood culture positive [None]

NARRATIVE: CASE EVENT DATE: 20170727
